FAERS Safety Report 5702406-7 (Version None)
Quarter: 2008Q2

REPORT INFORMATION
  Report Type: 
  Country: None (occurrence: None)
  Receive Date: 20080410
  Receipt Date: 20080404
  Transmission Date: 20081010
  Serious: No
  Sender: FDA-Public Use
  Company Number: APP200800249

PATIENT
  Age: 33 Year
  Sex: Female
  Weight: 77.1115 kg

DRUGS (2)
  1. HEPARIN SODIUM INJECTION [Suspect]
     Indication: HYPERCOAGULATION
     Dosage: 8000 USP UNITS, 2 IN 1 D, SUBCUTANEOUS
     Route: 058
     Dates: start: 20080403
  2. PRENATAL VITAMINS (PRENATAL VITAMINS) [Concomitant]

REACTIONS (4)
  - DRUG EXPOSURE DURING PREGNANCY [None]
  - INJECTION SITE BRUISING [None]
  - INJECTION SITE ERYTHEMA [None]
  - INJECTION SITE INJURY [None]
